FAERS Safety Report 8216220-4 (Version None)
Quarter: 2012Q1

REPORT INFORMATION
  Report Type: 
  Country: None (occurrence: None)
  Receive Date: 20120316
  Receipt Date: 20120313
  Transmission Date: 20120608
  Serious: Yes (Other)
  Sender: FDA-Public Use
  Company Number: PH-GLAXOSMITHKLINE-B0788363A

PATIENT
  Sex: Female
  Weight: 50 kg

DRUGS (5)
  1. METFORMIN HYDROCHLORIDE [Concomitant]
     Indication: DIABETES MELLITUS
     Dosage: 500MG PER DAY
     Route: 048
     Dates: start: 20110101
  2. ASPIRIN [Concomitant]
     Indication: ACUTE CORONARY SYNDROME
     Dosage: 80MG PER DAY
     Route: 048
     Dates: start: 20120301
  3. CLOPIDOGREL [Concomitant]
     Indication: ACUTE CORONARY SYNDROME
     Dosage: 75MG PER DAY
     Route: 048
     Dates: start: 20120301
  4. LIPITOR [Concomitant]
     Indication: DYSLIPIDAEMIA
     Dosage: 40MG PER DAY
     Route: 048
     Dates: start: 20120301
  5. ARIXTRA [Suspect]
     Indication: ACUTE CORONARY SYNDROME
     Dosage: 2.5MG PER DAY
     Route: 030
     Dates: start: 20120301, end: 20120304

REACTIONS (1)
  - MELAENA [None]
